FAERS Safety Report 14774425 (Version 4)
Quarter: 2018Q4

REPORT INFORMATION
  Report Type: Report from Study
  Country: US (occurrence: US)
  Receive Date: 20180418
  Receipt Date: 20181012
  Transmission Date: 20190204
  Serious: Yes (Death, Life-Threatening, Hospitalization, Other)
  Sender: FDA-Public Use
  Company Number: US-UCBSA-2016048648

PATIENT
  Age: 81 Year
  Sex: Male

DRUGS (6)
  1. ROTIGOTINE [Suspect]
     Active Substance: ROTIGOTINE
     Dosage: 4 MG, ONCE DAILY (QD)
     Route: 062
     Dates: start: 2018, end: 20180821
  2. ROTIGOTINE [Suspect]
     Active Substance: ROTIGOTINE
     Indication: RESTLESS LEGS SYNDROME
     Dosage: 4 MG, ONCE DAILY (QD)
     Route: 062
     Dates: start: 201509
  3. ROTIGOTINE [Suspect]
     Active Substance: ROTIGOTINE
     Indication: PARKINSON^S DISEASE
     Dosage: 4 MG, ONCE DAILY (QD)
     Route: 062
  4. LASIX [Concomitant]
     Active Substance: FUROSEMIDE
     Indication: PRODUCT USED FOR UNKNOWN INDICATION
  5. SINEMET [Concomitant]
     Active Substance: CARBIDOPA\LEVODOPA
     Indication: PARKINSON^S DISEASE
     Dosage: 25/250 MG, 2X/DAY (BID)
     Dates: start: 201406, end: 20180802
  6. ROTIGOTINE [Suspect]
     Active Substance: ROTIGOTINE
     Dosage: 1 MG, ONCE DAILY (QD)
     Route: 062
     Dates: start: 201710, end: 201805

REACTIONS (15)
  - Off label use [Unknown]
  - Incorrect dose administered [Unknown]
  - Lung disorder [Fatal]
  - Prostatomegaly [Not Recovered/Not Resolved]
  - Urinary tract infection [Unknown]
  - Hypotension [Recovered/Resolved]
  - Pleural effusion [Unknown]
  - Fall [Unknown]
  - Respiratory failure [Fatal]
  - Product dose omission [Unknown]
  - Metabolic encephalopathy [Unknown]
  - Pneumonia [Unknown]
  - Dysphagia [Unknown]
  - Hip fracture [Unknown]
  - Nephrolithiasis [Recovering/Resolving]

NARRATIVE: CASE EVENT DATE: 201509
